FAERS Safety Report 10495740 (Version 1)
Quarter: 2014Q4

REPORT INFORMATION
  Report Type: Other
  Country: JP (occurrence: JP)
  Receive Date: 20141003
  Receipt Date: 20141003
  Transmission Date: 20150528
  Serious: Yes (Other)
  Sender: FDA-Public Use
  Company Number: JP-BRISTOL-MYERS SQUIBB COMPANY-21458831

PATIENT
  Age: 61 Year
  Sex: Male

DRUGS (3)
  1. VILDAGLIPTIN [Concomitant]
     Active Substance: VILDAGLIPTIN
  2. METGLUCO [Suspect]
     Active Substance: METFORMIN HYDROCHLORIDE
     Indication: TYPE 2 DIABETES MELLITUS
     Route: 048
  3. MITIGLINIDE CALCIUM HYDRATE [Concomitant]
     Active Substance: MITIGLINIDE CALCIUM HYDRATE
     Indication: TYPE 2 DIABETES MELLITUS

REACTIONS (2)
  - Vomiting [Unknown]
  - Intestinal obstruction [Recovering/Resolving]
